FAERS Safety Report 5913142-6 (Version None)
Quarter: 2008Q4

REPORT INFORMATION
  Report Type: 
  Country: None (occurrence: None)
  Receive Date: 20081009
  Receipt Date: 20080929
  Transmission Date: 20090506
  Serious: Yes (Other)
  Sender: FDA-Public Use
  Company Number: CA-JNJFOC-20080802649

PATIENT
  Sex: Female

DRUGS (6)
  1. TYLENOL (CAPLET) [Suspect]
     Route: 048
  2. TYLENOL (CAPLET) [Suspect]
     Indication: ARTHRALGIA
     Dosage: 1-2 EVERY 8 HOURS
     Route: 048
  3. RABEPRAZOLE SODIUM [Concomitant]
     Indication: GASTROOESOPHAGEAL REFLUX DISEASE
  4. ELTROXIN [Concomitant]
     Indication: HYPOTHYROIDISM
  5. PHYSIO [Concomitant]
  6. THYROID TAB [Concomitant]

REACTIONS (3)
  - FREQUENT BOWEL MOVEMENTS [None]
  - PRURITUS [None]
  - THROMBOPHLEBITIS SUPERFICIAL [None]
